FAERS Safety Report 11811947 (Version 2)
Quarter: 2015Q4

REPORT INFORMATION
  Report Type: Report from Study
  Country: HN (occurrence: HN)
  Receive Date: 20151208
  Receipt Date: 20151223
  Transmission Date: 20160305
  Serious: Yes (Other)
  Sender: FDA-Public Use
  Company Number: PHHY2015HN159019

PATIENT
  Age: 18 Year
  Sex: Female
  Weight: 34.3 kg

DRUGS (3)
  1. GLIVEC [Suspect]
     Active Substance: IMATINIB MESYLATE
     Dosage: 400 MG, UNK
     Route: 065
  2. GLIVEC [Suspect]
     Active Substance: IMATINIB MESYLATE
     Dosage: 800 MG, UNK
     Route: 065
     Dates: start: 201210, end: 201411
  3. GLIVEC [Suspect]
     Active Substance: IMATINIB MESYLATE
     Indication: CHRONIC MYELOID LEUKAEMIA
     Dosage: 300 MG, QD
     Route: 065
     Dates: start: 201104

REACTIONS (12)
  - Pyrexia [Unknown]
  - Cardiac murmur [Unknown]
  - Splenomegaly [Unknown]
  - Asthenia [Unknown]
  - Pallor [Unknown]
  - Haemoglobin decreased [Unknown]
  - Leukocytosis [Unknown]
  - Thrombocytosis [Unknown]
  - Diarrhoea [Unknown]
  - Therapeutic response decreased [Unknown]
  - Depressed mood [Unknown]
  - Drug resistance [Unknown]

NARRATIVE: CASE EVENT DATE: 201202
